FAERS Safety Report 8236712-1 (Version None)
Quarter: 2012Q1

REPORT INFORMATION
  Report Type: 
  Country: None (occurrence: None)
  Receive Date: 20120323
  Receipt Date: 20120305
  Transmission Date: 20120608
  Serious: Yes (Hospitalization)
  Sender: FDA-Public Use
  Company Number: JPI-P-019827

PATIENT
  Age: 64 Year
  Sex: Male

DRUGS (9)
  1. MODAFINIL [Concomitant]
  2. XYREM [Suspect]
     Indication: CATAPLEXY
     Dosage: SEE IMAGE
     Route: 048
     Dates: start: 20110901, end: 20111016
  3. XYREM [Suspect]
     Indication: CATAPLEXY
     Dosage: SEE IMAGE
     Route: 048
     Dates: start: 20120131
  4. XYREM [Suspect]
     Indication: CATAPLEXY
     Dosage: SEE IMAGE
     Route: 048
     Dates: start: 20110608, end: 20110618
  5. XYREM [Suspect]
     Indication: CATAPLEXY
     Dosage: SEE IMAGE
     Route: 048
     Dates: start: 20110619, end: 20110629
  6. XYREM [Suspect]
     Indication: CATAPLEXY
     Dosage: SEE IMAGE
     Route: 048
     Dates: start: 20110630, end: 20110831
  7. XYREM [Suspect]
     Indication: CATAPLEXY
     Dosage: SEE IMAGE
     Route: 048
     Dates: start: 20111017, end: 20120125
  8. XYREM [Suspect]
     Indication: CATAPLEXY
     Dosage: SEE IMAGE
     Route: 048
     Dates: start: 20120128, end: 20120130
  9. MENTHOL W/METHYL SALICYLATE [Concomitant]

REACTIONS (5)
  - ROTATOR CUFF SYNDROME [None]
  - DYSURIA [None]
  - HYPERTONIC BLADDER [None]
  - DECREASED APPETITE [None]
  - HYPERHIDROSIS [None]
